FAERS Safety Report 13875152 (Version 2)
Quarter: 2017Q3

REPORT INFORMATION
  Report Type: Report from Study
  Country: JP (occurrence: JP)
  Receive Date: 20170816
  Receipt Date: 20170822
  Transmission Date: 20171127
  Serious: Yes (Hospitalization, Other)
  Sender: FDA-Public Use
  Company Number: JP-TAKEDA-2017TJP016762

PATIENT
  Age: 81 Year
  Sex: Male
  Weight: 60 kg

DRUGS (8)
  1. IRBETAN [Concomitant]
     Active Substance: IRBESARTAN
     Dosage: UNK
     Route: 048
  2. MAINTATE [Concomitant]
     Active Substance: BISOPROLOL FUMARATE
     Dosage: UNK
     Route: 048
  3. ALOGLIPTIN. [Suspect]
     Active Substance: ALOGLIPTIN
     Indication: TYPE 2 DIABETES MELLITUS
     Dosage: 6.25 MG, QD
     Route: 048
     Dates: start: 20120427, end: 20150210
  4. AMLODIN [Concomitant]
     Active Substance: AMLODIPINE BESYLATE
     Dosage: UNK
     Route: 048
  5. ALOGLIPTIN. [Suspect]
     Active Substance: ALOGLIPTIN
     Dosage: 25 MG, QD
     Route: 048
     Dates: start: 20160727
  6. SELARA [Concomitant]
     Active Substance: EPLERENONE
     Dosage: UNK
     Route: 048
  7. BEZAFIBRATE [Concomitant]
     Active Substance: BEZAFIBRATE
     Dosage: UNK
     Route: 048
  8. NATRIX [Concomitant]
     Active Substance: INDAPAMIDE
     Dosage: UNK
     Route: 048

REACTIONS (2)
  - Anti-neutrophil cytoplasmic antibody positive vasculitis [Not Recovered/Not Resolved]
  - Interstitial lung disease [Not Recovered/Not Resolved]

NARRATIVE: CASE EVENT DATE: 20141224
